FAERS Safety Report 9319118 (Version 2)
Quarter: 2013Q2

REPORT INFORMATION
  Report Type: Report from Study
  Country: US (occurrence: US)
  Receive Date: 20130530
  Receipt Date: 20130606
  Transmission Date: 20140414
  Serious: Yes (Death)
  Sender: FDA-Public Use
  Company Number: US-VERTEX PHARMACEUTICALS INC-2012-021714

PATIENT
  Sex: Male

DRUGS (8)
  1. VX-950 (TELAPREVIR) [Suspect]
     Indication: HEPATITIS C
     Dosage: 750 MG, TID
     Route: 048
     Dates: start: 20120914, end: 20120921
  2. PEGINTRON [Suspect]
     Indication: HEPATITIS C
     Dosage: UNK
     Dates: start: 20120914, end: 20120914
  3. RIBAVIRIN [Suspect]
     Indication: HEPATITIS C
     Dosage: 200 MG, UNK
     Dates: start: 20120914, end: 20120921
  4. CITALOPRAM [Concomitant]
     Dosage: 20 MG, UNK
  5. FUROSEMIDE [Concomitant]
     Dosage: 20 MG, UNK
  6. SUBOXONE SUB [Concomitant]
     Dosage: 8-2 MG
  7. VERSED [Concomitant]
     Dosage: 5 MG, UNK
     Route: 042
  8. FENTYL [Concomitant]
     Dosage: 100 ?G, UNK
     Route: 042

REACTIONS (2)
  - Hepatic cirrhosis [Fatal]
  - Confusional state [Unknown]
